FAERS Safety Report 4757636-8 (Version None)
Quarter: 2005Q3

REPORT INFORMATION
  Report Type: 
  Country: None (occurrence: None)
  Receive Date: 20050831
  Receipt Date: 20050613
  Transmission Date: 20060218
  Serious: Yes (Hospitalization, Disabling)
  Sender: FDA-Public Use
  Company Number: US-GLAXOSMITHKLINE-A0562394A

PATIENT
  Age: 46 Year
  Sex: Female

DRUGS (9)
  1. LAMICTAL [Suspect]
     Indication: BIPOLAR DISORDER
     Route: 048
     Dates: start: 20050201, end: 20050608
  2. SEROQUEL [Suspect]
     Indication: SLEEP DISORDER
     Dosage: 100MG AT NIGHT
     Route: 048
     Dates: start: 20040101
  3. SYNTHROID [Concomitant]
  4. ROCALTROL [Concomitant]
  5. ALEVE [Concomitant]
  6. IBUPROFEN [Concomitant]
  7. PREDNISONE TAB [Concomitant]
  8. ATENOLOL [Concomitant]
  9. VIACIN [Concomitant]

REACTIONS (11)
  - ARTHRALGIA [None]
  - ARTHRITIS [None]
  - CONVULSION [None]
  - DRUG INTERACTION [None]
  - JOINT SWELLING [None]
  - MONARTHRITIS [None]
  - MOVEMENT DISORDER [None]
  - MUSCLE ATROPHY [None]
  - MYALGIA [None]
  - PHOTOPHOBIA [None]
  - PHOTOSENSITIVITY REACTION [None]
